FAERS Safety Report 5299793-3 (Version None)
Quarter: 2007Q2

REPORT INFORMATION
  Report Type: 
  Country: None (occurrence: None)
  Receive Date: 20070417
  Receipt Date: 20070403
  Transmission Date: 20071010
  Serious: Yes (Hospitalization)
  Sender: FDA-Public Use
  Company Number: US-AMGEN-US218035

PATIENT
  Sex: Female

DRUGS (5)
  1. NEUPOGEN [Suspect]
     Indication: NEUTROPENIA
     Route: 058
     Dates: start: 20070212
  2. TOPOTECAN HYDROCHLORIDE [Concomitant]
     Indication: OVARIAN CANCER
     Route: 042
     Dates: start: 20070105, end: 20070208
  3. TOPOTECAN HYDROCHLORIDE [Concomitant]
     Route: 042
     Dates: start: 20070209
  4. CARBOPLATIN [Concomitant]
     Indication: OVARIAN CANCER
     Route: 042
     Dates: start: 20070105
  5. EPOGEN [Concomitant]
     Route: 065

REACTIONS (1)
  - BACK PAIN [None]
